FAERS Safety Report 18596395 (Version 5)
Quarter: 2021Q3

REPORT INFORMATION
  Report Type: Report from Study
  Country: US (occurrence: US)
  Receive Date: 20201209
  Receipt Date: 20210702
  Transmission Date: 20211014
  Serious: Yes (Hospitalization, Other)
  Sender: FDA-Public Use
  Company Number: US-TAKEDA-2020TUS028554

PATIENT
  Sex: Female
  Weight: 79 kg

DRUGS (8)
  1. LOSARTAN POTASSIUM. [Concomitant]
     Active Substance: LOSARTAN POTASSIUM
     Indication: HYPERTENSION
     Dosage: UNK
  2. PROCHLORPERAZINE. [Concomitant]
     Active Substance: PROCHLORPERAZINE
     Dosage: UNK
  3. AMLODIPINE BESYLATE. [Concomitant]
     Active Substance: AMLODIPINE BESYLATE
     Dosage: UNK
  4. ITRACONAZOLE. [Suspect]
     Active Substance: ITRACONAZOLE
     Indication: FUNGAL TEST
     Dosage: UNK
     Route: 065
  5. METFORMIN HYDROCHLORIDE. [Concomitant]
     Active Substance: METFORMIN HYDROCHLORIDE
     Indication: DIABETES MELLITUS
     Dosage: UNK
     Route: 065
  6. PONATINIB [Suspect]
     Active Substance: PONATINIB
     Dosage: 15 MILLIGRAM, QD
     Route: 048
     Dates: start: 202006
  7. PONATINIB [Suspect]
     Active Substance: PONATINIB
     Indication: ACUTE LYMPHOCYTIC LEUKAEMIA
     Dosage: 30 MILLIGRAM, QD
     Route: 048
  8. METOPROLOL SUCCINATE. [Concomitant]
     Active Substance: METOPROLOL SUCCINATE
     Indication: HYPERTENSION
     Dosage: UNK
     Route: 065

REACTIONS (16)
  - Product use issue [Unknown]
  - Acute lymphocytic leukaemia recurrent [Unknown]
  - Skin exfoliation [Unknown]
  - Product dose omission issue [Unknown]
  - Pleural effusion [Unknown]
  - Respiratory tract infection fungal [Unknown]
  - Dry skin [Unknown]
  - Nausea [Unknown]
  - Adverse drug reaction [Unknown]
  - Illness [Unknown]
  - Malaise [Unknown]
  - Cough [Unknown]
  - Eczema [Unknown]
  - Dyspnoea [Unknown]
  - Asthenia [Unknown]
  - Fatigue [Unknown]
